FAERS Safety Report 8870454 (Version 1)
Quarter: 2012Q4

REPORT INFORMATION
  Report Type: 
  Country: US (occurrence: US)
  Receive Date: 20121026
  Receipt Date: 20121026
  Transmission Date: 20130627
  Serious: No
  Sender: FDA-Public Use
  Company Number: US-AMGEN-USASP2012043482

PATIENT
  Age: 20 Year
  Sex: Female
  Weight: 63.49 kg

DRUGS (6)
  1. ENBREL [Suspect]
     Indication: PRODUCT USED FOR UNKNOWN INDICATION
     Dosage: 50 mg, 2 times/wk
     Route: 058
  2. CENTRUM                            /00554501/ [Concomitant]
     Dosage: UNK
  3. SINGULAIR [Concomitant]
     Dosage: 10 mg, UNK
  4. ALBUTEROL                          /00139501/ [Concomitant]
     Dosage: 90 mug, UNK
  5. ADDERALL [Concomitant]
     Dosage: 10 mg, UNK
  6. NECON 10/11 28 [Concomitant]
     Dosage: 10/11-28

REACTIONS (1)
  - Pharyngitis streptococcal [Recovered/Resolved]
